FAERS Safety Report 23330907 (Version 1)
Quarter: 2023Q4

REPORT INFORMATION
  Report Type: Spontaneous
  Country: US (occurrence: None)
  Receive Date: 20231221
  Receipt Date: 20231221
  Transmission Date: 20240110
  Serious: No
  Sender: FDA-Public Use
  Company Number: None

PATIENT
  Age: 51 Year
  Sex: Female

DRUGS (1)
  1. HUMIRA [Suspect]
     Active Substance: ADALIMUMAB
     Indication: Polyarthritis
     Dosage: FREQUENCY : EVERY SECOND;?
     Route: 058
     Dates: start: 202307

REACTIONS (7)
  - Stomatitis [None]
  - Candida infection [None]
  - Weight decreased [None]
  - Nausea [None]
  - Hypophagia [None]
  - Immunosuppression [None]
  - Influenza like illness [None]
